FAERS Safety Report 6005140-1 (Version None)
Quarter: 2008Q4

REPORT INFORMATION
  Report Type: 
  Country: None (occurrence: None)
  Receive Date: 20081216
  Receipt Date: 20071222
  Transmission Date: 20090506
  Serious: No
  Sender: FDA-Public Use
  Company Number: US-AMGEN-KDL258036

PATIENT
  Sex: Male

DRUGS (2)
  1. ENBREL [Suspect]
     Indication: PSORIASIS
     Route: 058
     Dates: start: 20070501
  2. ENBREL [Suspect]
     Indication: PUSTULAR PSORIASIS

REACTIONS (2)
  - PHARYNGITIS STREPTOCOCCAL [None]
  - PSORIASIS [None]
